FAERS Safety Report 7970766-2 (Version None)
Quarter: 2011Q4

REPORT INFORMATION
  Report Type: 
  Country: None (occurrence: None)
  Receive Date: 20111212
  Receipt Date: 20111130
  Transmission Date: 20120403
  Serious: Yes (Death, Hospitalization, Other)
  Sender: FDA-Public Use
  Company Number: JP-AMGEN-JPNCT2011052881

PATIENT
  Age: 75 Year
  Sex: Male
  Weight: 42 kg

DRUGS (24)
  1. PANITUMUMAB [Suspect]
     Dosage: 6 MG/KG, Q2WK
     Route: 041
     Dates: start: 20110224, end: 20110224
  2. PANITUMUMAB [Suspect]
     Dosage: 6 MG/KG, Q2WK
     Route: 041
     Dates: start: 20110615, end: 20110615
  3. FLUOROURACIL [Concomitant]
     Route: 040
     Dates: start: 20110907
  4. PANITUMUMAB [Suspect]
     Dosage: 6 MG/KG, Q2WK
     Route: 041
     Dates: start: 20110323, end: 20110323
  5. PANITUMUMAB [Suspect]
     Dosage: 6 MG/KG, Q2WK
     Route: 041
     Dates: start: 20110518, end: 20110518
  6. FLUOROURACIL [Concomitant]
     Indication: COLORECTAL CANCER
     Route: 040
     Dates: start: 20101104, end: 20110906
  7. DECADRON [Concomitant]
     Dosage: UNK
     Route: 042
  8. FLUOROURACIL [Concomitant]
     Route: 041
     Dates: start: 20110907
  9. IRINOTECAN HYDROCHLORIDE [Concomitant]
     Route: 041
     Dates: start: 20110907
  10. PANITUMUMAB [Suspect]
     Indication: COLORECTAL CANCER
     Dosage: 6 MG/KG, Q2WK
     Route: 041
     Dates: start: 20101104, end: 20110127
  11. PANITUMUMAB [Suspect]
     Dosage: 6 MG/KG, Q2WK
     Route: 041
     Dates: start: 20110420, end: 20110420
  12. OXALIPLATIN [Concomitant]
     Indication: COLORECTAL CANCER
     Route: 041
     Dates: start: 20101104, end: 20110906
  13. LEVOLEUCOVORIN CALCIUM [Concomitant]
     Indication: COLORECTAL CANCER
     Route: 041
     Dates: start: 20101104, end: 20110906
  14. LEVOFLOXACIN [Concomitant]
     Dosage: UNK
     Route: 048
  15. OXALIPLATIN [Concomitant]
     Route: 041
     Dates: start: 20101104, end: 20110824
  16. PANITUMUMAB [Suspect]
     Dosage: 6 MG/KG, Q2WK
     Route: 041
     Dates: start: 20110824
  17. FLUOROURACIL [Concomitant]
     Route: 040
     Dates: start: 20101104, end: 20110824
  18. FLUOROURACIL [Concomitant]
     Route: 041
     Dates: start: 20101104, end: 20110824
  19. FLUOROURACIL [Concomitant]
     Route: 041
     Dates: start: 20101104, end: 20110906
  20. LEVOLEUCOVORIN CALCIUM [Concomitant]
     Route: 041
     Dates: start: 20110907
  21. LEVOLEUCOVORIN CALCIUM [Concomitant]
     Route: 041
     Dates: start: 20101104, end: 20110824
  22. KYTRIL [Concomitant]
     Dosage: UNK
     Route: 042
  23. KYTRIL [Concomitant]
     Route: 042
     Dates: start: 20101104, end: 20110921
  24. DECADRON [Concomitant]
     Route: 042
     Dates: start: 20101104, end: 20110921

REACTIONS (4)
  - INTERSTITIAL LUNG DISEASE [None]
  - STOMATITIS [None]
  - DYSPNOEA [None]
  - RASH [None]
